FAERS Safety Report 25179218 (Version 3)
Quarter: 2025Q3

REPORT INFORMATION
  Report Type: Report from Study
  Country: US (occurrence: US)
  Receive Date: 20250409
  Receipt Date: 20250730
  Transmission Date: 20251021
  Serious: Yes (Hospitalization, Other)
  Sender: ABBVIE
  Company Number: US-ABBVIE-6211277

PATIENT
  Age: 69 Year
  Sex: Female
  Weight: 65.77 kg

DRUGS (6)
  1. RINVOQ [Suspect]
     Active Substance: UPADACITINIB
     Indication: Dermatitis atopic
     Dosage: 15 MILLIGRAM
     Route: 048
     Dates: start: 20230510
  2. ESCITALOPRAM [Concomitant]
     Active Substance: ESCITALOPRAM OXALATE
     Indication: Depression
  3. AMLODIPINE [Concomitant]
     Active Substance: AMLODIPINE BESYLATE
     Indication: Hypertension
  4. TRAZODONE [Concomitant]
     Active Substance: TRAZODONE HYDROCHLORIDE
     Indication: Sleep disorder
  5. ROPINIROLE [Concomitant]
     Active Substance: ROPINIROLE
     Indication: Restless legs syndrome
  6. MELOXICAM [Concomitant]
     Active Substance: MELOXICAM
     Indication: Arthritis

REACTIONS (8)
  - Thoracic vertebral fracture [Not Recovered/Not Resolved]
  - Neck surgery [Not Recovered/Not Resolved]
  - Balance disorder [Not Recovered/Not Resolved]
  - Cyst [Not Recovered/Not Resolved]
  - Joint range of motion decreased [Unknown]
  - Back pain [Not Recovered/Not Resolved]
  - Gait inability [Recovering/Resolving]
  - Back pain [Recovering/Resolving]

NARRATIVE: CASE EVENT DATE: 20250101
